FAERS Safety Report 13959603 (Version 1)
Quarter: 2017Q3

REPORT INFORMATION
  Report Type: Spontaneous
  Country: US (occurrence: US)
  Receive Date: 20170911
  Receipt Date: 20170911
  Transmission Date: 20171128
  Serious: Yes (Death, Life-Threatening)
  Sender: FDA-Public Use
  Company Number: US-FRESENIUS KABI-FK201707462

PATIENT
  Age: 86 Year
  Sex: Male

DRUGS (2)
  1. AMIODARONE HCL (MANUFACTURER UNKNOWN) [Suspect]
     Active Substance: AMIODARONE HYDROCHLORIDE
     Indication: ATRIAL FIBRILLATION
     Route: 065
  2. APIXABAN [Suspect]
     Active Substance: APIXABAN
     Indication: ATRIAL FIBRILLATION
     Route: 065

REACTIONS (3)
  - Drug interaction [Unknown]
  - Pulmonary alveolar haemorrhage [Fatal]
  - Product use in unapproved indication [Unknown]
